FAERS Safety Report 9075425 (Version 1)
Quarter: 2013Q1

REPORT INFORMATION
  Report Type: Report from Study
  Country: US (occurrence: US)
  Receive Date: 20130129
  Receipt Date: 20130129
  Transmission Date: 20140127
  Serious: No
  Sender: FDA-Public Use
  Company Number: US-ABBOTT-12P-163-0943569-00

PATIENT
  Age: 86 Year
  Sex: Female

DRUGS (5)
  1. HUMIRA 40 MG/ 0.8 ML PRE-FILLED SYRINGE [Suspect]
     Indication: RHEUMATOID ARTHRITIS
     Dates: start: 20120531
  2. NEURONTIN [Concomitant]
     Indication: FIBROMYALGIA
     Dosage: DAILY
  3. ULTRAM [Concomitant]
     Indication: ARTHRALGIA
     Dosage: DAILY
  4. SYNTHROID [Concomitant]
     Indication: HYPOTHYROIDISM
     Dosage: DAILY
  5. PROTONIX [Concomitant]
     Indication: IRRITABLE BOWEL SYNDROME
     Dosage: DAILY

REACTIONS (2)
  - Swollen tongue [Not Recovered/Not Resolved]
  - Oral fungal infection [Not Recovered/Not Resolved]
